FAERS Safety Report 17457017 (Version 1)
Quarter: 2020Q1

REPORT INFORMATION
  Report Type: Spontaneous
  Country: US (occurrence: US)
  Receive Date: 20200225
  Receipt Date: 20200225
  Transmission Date: 20200409
  Serious: No
  Sender: FDA-Public Use
  Company Number: US-SA-2020SA048938

PATIENT
  Sex: Male

DRUGS (3)
  1. TOBRAMYCIN + DEXAMETHASONE CELSUS [Concomitant]
  2. DUPIXENT [Suspect]
     Active Substance: DUPILUMAB
     Indication: ASTHMA
     Dosage: 1 DF, QOW
     Route: 058
     Dates: start: 20200117
  3. MONTELUKAST [Concomitant]
     Active Substance: MONTELUKAST SODIUM

REACTIONS (2)
  - Eye infection [Not Recovered/Not Resolved]
  - Extra dose administered [Unknown]
